FAERS Safety Report 12519232 (Version 1)
Quarter: 2016Q2

REPORT INFORMATION
  Report Type: Spontaneous
  Country: US (occurrence: US)
  Receive Date: 20160630
  Receipt Date: 20160630
  Transmission Date: 20160815
  Serious: No
  Sender: FDA-Public Use
  Company Number: AE-YSP-16-003

PATIENT
  Age: 44 Year
  Sex: Female
  Weight: 50 kg

DRUGS (8)
  1. AVINZA [Suspect]
     Active Substance: MORPHINE SULFATE
     Route: 048
     Dates: start: 20150901
  2. FENTANYL. [Suspect]
     Active Substance: FENTANYL
     Route: 062
  3. CITALOPRAM [Concomitant]
     Active Substance: CITALOPRAM HYDROBROMIDE
  4. MORPHINE SULFATE. [Suspect]
     Active Substance: MORPHINE SULFATE
     Route: 048
  5. ^MIXED TOPICAL MEDICINE. MIXTURE OF KETAMINE, AMITRIPYLINE, GABA,DMSO^ [Concomitant]
     Route: 061
  6. MELOXICAM. [Suspect]
     Active Substance: MELOXICAM
     Indication: COMPLEX REGIONAL PAIN SYNDROME
     Route: 048
     Dates: start: 20160501, end: 20160603
  7. LYRICA [Concomitant]
     Active Substance: PREGABALIN
  8. LIDODERM [Concomitant]
     Active Substance: LIDOCAINE

REACTIONS (2)
  - Drug ineffective [Unknown]
  - Abdominal discomfort [Unknown]

NARRATIVE: CASE EVENT DATE: 20160501
